FAERS Safety Report 5489111-X (Version None)
Quarter: 2007Q4

REPORT INFORMATION
  Report Type: 
  Country: None (occurrence: None)
  Receive Date: 20071005
  Receipt Date: 20070925
  Transmission Date: 20080405
  Serious: Yes (Other)
  Sender: FDA-Public Use
  Company Number: PHEH2007US10492

PATIENT
  Sex: Female

DRUGS (16)
  1. TEKTURNA [Suspect]
     Indication: HYPERTENSION
     Dosage: 300 MG, QD, ORAL, 2 TABS (600MG) QAM, ORAL, 300 MG, BID, ORAL
     Route: 048
     Dates: end: 20070730
  2. TEKTURNA [Suspect]
     Indication: HYPERTENSION
     Dosage: 300 MG, QD, ORAL, 2 TABS (600MG) QAM, ORAL, 300 MG, BID, ORAL
     Route: 048
     Dates: start: 20070731
  3. ZIAC [Concomitant]
  4. SYNTHROID [Concomitant]
  5. AMLODIPINE [Concomitant]
  6. ELESTAT (EPINASTINE HYDROCHLORIDE) [Concomitant]
  7. ACIDOPHILUS (LACTOBACILLUS ACIDOPHILUS) [Concomitant]
  8. ENTERIC ASPIRIN (ACETYLSALICYLIC ACID) [Concomitant]
  9. CITRACAL (CALCIUM CITRATE) [Concomitant]
  10. FLAXSEED OIL (LINUM USITATISSIMUM SEED OIL) [Concomitant]
  11. GLUCOSAMINE W/CHONDROITIN (CHONDROITIN SULFATE, GLUCOSAMINE) [Concomitant]
  12. LECITHIN (LECITHIN) [Concomitant]
  13. NIACIN [Concomitant]
  14. VITAMIN B6 [Concomitant]
  15. ASCORBIC ACID [Concomitant]
  16. VITAMIN E [Concomitant]

REACTIONS (2)
  - LIP DRY [None]
  - LIP SWELLING [None]
